FAERS Safety Report 25739278 (Version 1)
Quarter: 2025Q3

REPORT INFORMATION
  Report Type: Spontaneous
  Country: EU (occurrence: EU)
  Receive Date: 20250829
  Receipt Date: 20250829
  Transmission Date: 20251021
  Serious: Yes (Hospitalization)
  Sender: ABBVIE
  Company Number: None

PATIENT
  Age: 89 Year
  Sex: Female
  Weight: 58 kg

DRUGS (5)
  1. VENETOCLAX [Suspect]
     Active Substance: VENETOCLAX
     Indication: Acute myeloid leukaemia
     Route: 048
     Dates: start: 20250619, end: 20250626
  2. MIDOSTAURIN [Suspect]
     Active Substance: MIDOSTAURIN
     Indication: Acute myeloid leukaemia
     Route: 048
     Dates: start: 20250626, end: 20250626
  3. PIPERACILLIN SODIUM\TAZOBACTAM SODIUM [Suspect]
     Active Substance: PIPERACILLIN SODIUM\TAZOBACTAM SODIUM
     Indication: Febrile bone marrow aplasia
     Dosage: 12G/J PUIS 8G/J DEPUIS LE 17/07, 4 G/500 MG, POUDRE POUR SOLUTION POUR PERFUSION
     Route: 042
     Dates: start: 20250703, end: 20250718
  4. RACECADOTRIL [Suspect]
     Active Substance: RACECADOTRIL
     Indication: Febrile bone marrow aplasia
     Dosage: 100MG MATIN, MIDI ET SOIR
     Route: 048
     Dates: start: 20250716, end: 20250721
  5. VIDAZA [Suspect]
     Active Substance: AZACITIDINE
     Indication: Acute myeloid leukaemia
     Route: 042
     Dates: start: 20250522, end: 20250626

REACTIONS (3)
  - Rash maculo-papular [Recovering/Resolving]
  - Febrile bone marrow aplasia [Recovered/Resolved]
  - Acute kidney injury [Recovering/Resolving]

NARRATIVE: CASE EVENT DATE: 20250701
